FAERS Safety Report 9375269 (Version 1)
Quarter: 2013Q2

REPORT INFORMATION
  Report Type: Spontaneous
  Country: US (occurrence: US)
  Receive Date: 20130628
  Receipt Date: 20130628
  Transmission Date: 20140414
  Serious: Yes (Other)
  Sender: FDA-Public Use
  Company Number: US-GLAXOSMITHKLINE-A1028927A

PATIENT
  Age: 53 Year
  Sex: Female

DRUGS (8)
  1. BENLYSTA [Suspect]
     Indication: SYSTEMIC LUPUS ERYTHEMATOSUS
     Dosage: 1200MG MONTHLY
     Route: 042
     Dates: start: 201303
  2. PLAQUENIL [Concomitant]
  3. MEDROL [Concomitant]
  4. OMEPRAZOLE [Concomitant]
  5. BUPROPION [Concomitant]
  6. SYNTHROID [Concomitant]
  7. CALCIUM [Concomitant]
  8. VITAMIN D [Concomitant]

REACTIONS (7)
  - Tooth abscess [Recovered/Resolved]
  - Systemic lupus erythematosus [Recovered/Resolved]
  - Toothache [Recovered/Resolved]
  - Malaise [Recovered/Resolved]
  - Headache [Recovered/Resolved]
  - Pyrexia [Recovered/Resolved]
  - Adverse event [Unknown]
